FAERS Safety Report 15051643 (Version 1)
Quarter: 2018Q2

REPORT INFORMATION
  Report Type: Spontaneous
  Country: CN (occurrence: CN)
  Receive Date: 20180622
  Receipt Date: 20180622
  Transmission Date: 20180711
  Serious: Yes (Hospitalization)
  Sender: FDA-Public Use
  Company Number: CN-JUBILANT CADISTA PHARMACEUTICALS-2018JUB00231

PATIENT
  Age: 50 Year
  Sex: Female

DRUGS (4)
  1. IMMEDIATE-ACTING INSULIN [Concomitant]
     Dosage: 2X/DAY; 12 U AT 8:00 A.M. AND 10 U AT 5:00 P.M.
  2. PANTOPRAZOLE SODIUM. [Suspect]
     Active Substance: PANTOPRAZOLE SODIUM
     Indication: NAUSEA
  3. PANTOPRAZOLE SODIUM. [Suspect]
     Active Substance: PANTOPRAZOLE SODIUM
     Indication: CHRONIC GASTRITIS
     Dosage: 40 MG, 1X/DAY
     Route: 042
  4. LONG-ACTING INSULIN [Concomitant]
     Dosage: UNK, 1X/DAY
     Route: 058

REACTIONS (1)
  - Acute kidney injury [Recovered/Resolved]

NARRATIVE: CASE EVENT DATE: 201707
